FAERS Safety Report 8027766-6 (Version None)
Quarter: 2012Q1

REPORT INFORMATION
  Report Type: 
  Country: None (occurrence: None)
  Receive Date: 20120106
  Receipt Date: 20120106
  Transmission Date: 20120608
  Serious: Yes (Hospitalization)
  Sender: FDA-Public Use
  Company Number: None

PATIENT
  Age: 62 Year
  Sex: Female
  Weight: 76.203 kg

DRUGS (3)
  1. CYMBALTA [Concomitant]
     Dosage: 60M
     Route: 048
     Dates: start: 20111124, end: 20111227
  2. CYMBALTA [Suspect]
     Indication: DEPRESSION
     Dosage: 30 M
     Route: 048
     Dates: start: 20111024, end: 20111123
  3. CYMBALTA [Suspect]
     Indication: ARTHRALGIA
     Dosage: 30 M
     Route: 048
     Dates: start: 20111024, end: 20111123

REACTIONS (6)
  - ECONOMIC PROBLEM [None]
  - DIZZINESS [None]
  - FEELING DRUNK [None]
  - TRANSIENT ISCHAEMIC ATTACK [None]
  - NAUSEA [None]
  - VISUAL IMPAIRMENT [None]
